FAERS Safety Report 10038405 (Version 1)
Quarter: 2014Q1

REPORT INFORMATION
  Report Type: Spontaneous
  Country: US (occurrence: None)
  Receive Date: 20140306
  Receipt Date: 20140306
  Transmission Date: 20141002
  Serious: Yes (Hospitalization)
  Sender: FDA-Public Use
  Company Number: 163-21880-13064298

PATIENT
  Age: 66 Year
  Sex: Male

DRUGS (2)
  1. REVLIMID [Suspect]
     Indication: PLASMA CELL MYELOMA
     Dosage: 5 MG, 1 IN 1 D, PO
     Route: 048
     Dates: start: 20130401
  2. HEPARIN (HEPARIN) (UNKNOWN) [Concomitant]

REACTIONS (3)
  - Transient ischaemic attack [None]
  - Myocardial infarction [None]
  - Hypoaesthesia [None]
